FAERS Safety Report 8132643-6 (Version None)
Quarter: 2012Q1

REPORT INFORMATION
  Report Type: 
  Country: None (occurrence: None)
  Receive Date: 20120213
  Receipt Date: 20120202
  Transmission Date: 20120608
  Serious: Yes (Hospitalization)
  Sender: FDA-Public Use
  Company Number: US-GLAXOSMITHKLINE-B0723202A

PATIENT
  Age: 58 Year
  Sex: Female
  Weight: 84.1 kg

DRUGS (1)
  1. AVANDIA [Suspect]
     Indication: DIABETES MELLITUS
     Dosage: 4MG TWICE PER DAY
     Route: 048
     Dates: start: 20000401

REACTIONS (3)
  - CORONARY ARTERY DISEASE [None]
  - ANGINA UNSTABLE [None]
  - CORONARY ARTERY BYPASS [None]
